FAERS Safety Report 10616676 (Version 3)
Quarter: 2015Q2

REPORT INFORMATION
  Report Type: Spontaneous
  Country: US (occurrence: US)
  Receive Date: 20141201
  Receipt Date: 20150430
  Transmission Date: 20150821
  Serious: Yes (Hospitalization, Other)
  Sender: FDA-Public Use
  Company Number: US-GLAXOSMITHKLINE-US2014GSK027415

PATIENT
  Age: 61 Year
  Sex: Female

DRUGS (9)
  1. ACTOS [Concomitant]
     Active Substance: PIOGLITAZONE HYDROCHLORIDE
  2. ATIVAN [Concomitant]
     Active Substance: LORAZEPAM
  3. METFORMIN [Concomitant]
     Active Substance: METFORMIN HYDROCHLORIDE
  4. ADVAIR DISKUS [Suspect]
     Active Substance: FLUTICASONE PROPIONATE\SALMETEROL XINAFOATE
     Indication: ASTHMA
     Dosage: 1 PUFF(S), QD
  5. PROZAC [Concomitant]
     Active Substance: FLUOXETINE HYDROCHLORIDE
  6. FISH OIL [Concomitant]
     Active Substance: FISH OIL
  7. SIMVASTATIN. [Concomitant]
     Active Substance: SIMVASTATIN
  8. BUSPAR [Concomitant]
     Active Substance: BUSPIRONE HYDROCHLORIDE
  9. TRILIPIX [Concomitant]
     Active Substance: FENOFIBRIC ACID

REACTIONS (10)
  - Head injury [Unknown]
  - Brain injury [Not Recovered/Not Resolved]
  - Fall [Not Recovered/Not Resolved]
  - Thought blocking [Unknown]
  - Medication error [Unknown]
  - Spinal fracture [Recovering/Resolving]
  - Mouth ulceration [Recovered/Resolved]
  - Seizure [Recovered/Resolved]
  - Terminal state [Recovered/Resolved]
  - Tongue disorder [Unknown]

NARRATIVE: CASE EVENT DATE: 2011
